FAERS Safety Report 6059063-2 (Version None)
Quarter: 2009Q1

REPORT INFORMATION
  Report Type: 
  Country: None (occurrence: None)
  Receive Date: 20090130
  Receipt Date: 20090119
  Transmission Date: 20090719
  Serious: Yes (Hospitalization)
  Sender: FDA-Public Use
  Company Number: B0555128A

PATIENT
  Age: 73 Year
  Sex: Female

DRUGS (9)
  1. AUGMENTIN '125' [Suspect]
     Indication: ERYSIPELAS
     Dosage: 3G PER DAY
     Route: 042
     Dates: start: 20081024, end: 20081103
  2. OMEPRAZOLE [Suspect]
     Dosage: 40MG TWICE PER DAY
     Route: 042
     Dates: start: 20081030, end: 20081104
  3. LASILIX 40 MG [Concomitant]
     Route: 065
  4. ALDACTONE 75 [Concomitant]
     Route: 065
  5. DIFFU K [Concomitant]
     Route: 065
  6. DIGOXIN [Concomitant]
     Route: 065
  7. FLAGYL [Concomitant]
     Indication: ERYSIPELAS
     Dosage: 500ML24 PER DAY
     Route: 042
     Dates: start: 20081024, end: 20081105
  8. CALCIPARINE [Concomitant]
     Route: 065
  9. ASPEGIC 325 [Concomitant]
     Route: 065

REACTIONS (4)
  - ALTERED STATE OF CONSCIOUSNESS [None]
  - CONFUSIONAL STATE [None]
  - HALLUCINATION [None]
  - SOMNOLENCE [None]
